FAERS Safety Report 4378313-1 (Version None)
Quarter: 2004Q2

REPORT INFORMATION
  Report Type: 
  Country: None (occurrence: None)
  Receive Date: 20040609
  Receipt Date: 20040525
  Transmission Date: 20050107
  Serious: Yes (Hospitalization)
  Sender: FDA-Public Use
  Company Number: A03200300942

PATIENT
  Age: 30 Year
  Sex: Female

DRUGS (4)
  1. ELOXATIN [Suspect]
     Indication: COLORECTAL CANCER
     Dosage: 85 MG/M2 ONCE INTRAVENOUS NOS
     Route: 042
     Dates: start: 20030502, end: 20030502
  2. ELOXATIN [Suspect]
     Indication: METASTASES TO PERITONEUM
     Dosage: 85 MG/M2 ONCE INTRAVENOUS NOS
     Route: 042
     Dates: start: 20030502, end: 20030502
  3. LEUCOVORIN [Concomitant]
  4. FLUOROUCIL [Concomitant]
     Indication: COLORECTAL CANCER

REACTIONS (5)
  - ABDOMINAL PAIN [None]
  - BLOOD CALCIUM DECREASED [None]
  - BLOOD CREATININE INCREASED [None]
  - BLOOD PHOSPHORUS INCREASED [None]
  - TUMOUR LYSIS SYNDROME [None]
